FAERS Safety Report 5292241-9 (Version None)
Quarter: 2007Q2

REPORT INFORMATION
  Report Type: 
  Country: None (occurrence: None)
  Receive Date: 20070410
  Receipt Date: 20070402
  Transmission Date: 20071010
  Serious: Yes (Other)
  Sender: FDA-Public Use
  Company Number: US-ABBOTT-07P-163-0361655-00

PATIENT
  Age: 11 Year
  Sex: Male

DRUGS (10)
  1. VALPROIC ACID [Suspect]
     Indication: MANIA
     Route: 065
  2. VALPROIC ACID [Suspect]
     Route: 065
  3. VALPROIC ACID [Suspect]
     Route: 065
  4. RISPERDAL [Interacting]
     Indication: AGGRESSION
     Route: 065
  5. RISPERDAL [Interacting]
     Indication: AGITATION
     Route: 065
  6. RISPERDAL [Interacting]
     Route: 065
  7. RISPERDAL [Interacting]
     Route: 065
  8. LITHIUM CARBONATE [Concomitant]
     Indication: PSYCHOTIC DISORDER
     Route: 065
  9. LITHIUM CARBONATE [Concomitant]
     Indication: MANIA
  10. CHLORPROMAZINE [Concomitant]
     Indication: DRUG USE FOR UNKNOWN INDICATION
     Dosage: TWO ADDITIONAL DOSES

REACTIONS (3)
  - DRUG INTERACTION [None]
  - HYPERAMMONAEMIA [None]
  - MANIA [None]
